FAERS Safety Report 10185978 (Version 3)
Quarter: 2014Q2

REPORT INFORMATION
  Report Type: Spontaneous
  Country: HU (occurrence: HU)
  Receive Date: 20140521
  Receipt Date: 20140530
  Transmission Date: 20141212
  Serious: No
  Sender: FDA-Public Use
  Company Number: HU-PFIZER INC-2014085475

PATIENT
  Age: 47 Year
  Sex: Male

DRUGS (5)
  1. ADVIL ULTRA FORTE [Suspect]
     Indication: MIGRAINE
     Dosage: UNK, AS NEEDED
  2. ADVIL ULTRA FORTE [Suspect]
     Indication: HEADACHE
  3. MEZYM FORTE [Concomitant]
     Indication: DYSPEPSIA
     Dosage: UNK
  4. VITAMIN D [Concomitant]
     Dosage: UNK
  5. MULTIVITAMINS [Concomitant]
     Dosage: UNK

REACTIONS (6)
  - Drug ineffective [Unknown]
  - Arthritis reactive [Not Recovered/Not Resolved]
  - C-reactive protein abnormal [Recovered/Resolved]
  - Vitamin D deficiency [Not Recovered/Not Resolved]
  - Iron deficiency [Not Recovered/Not Resolved]
  - Yersinia test positive [Recovered/Resolved]
